FAERS Safety Report 13109065 (Version 1)
Quarter: 2017Q1

REPORT INFORMATION
  Report Type: Spontaneous
  Country: US (occurrence: US)
  Receive Date: 20170112
  Receipt Date: 20170112
  Transmission Date: 20170428
  Serious: No
  Sender: FDA-Public Use
  Company Number: None

PATIENT
  Age: 71 Year
  Sex: Female
  Weight: 50.35 kg

DRUGS (4)
  1. ENALAPRIL [Concomitant]
     Active Substance: ENALAPRIL
  2. PROLIA [Suspect]
     Active Substance: DENOSUMAB
     Indication: OSTEOPOROSIS
     Dosage: ONE INJECTION, NONLY ONE LAST 6MOS.?
     Dates: start: 20160609
  3. HCT [Concomitant]
     Active Substance: HYDROCHLOROTHIAZIDE
  4. MELATONIN [Concomitant]
     Active Substance: MELATONIN

REACTIONS (19)
  - Glossodynia [None]
  - Pain in jaw [None]
  - Skin exfoliation [None]
  - Dysuria [None]
  - Back pain [None]
  - Pruritus [None]
  - Irritable bowel syndrome [None]
  - Pain in extremity [None]
  - Palmar erythema [None]
  - Peripheral swelling [None]
  - Oral pain [None]
  - Neuralgia [None]
  - Arthralgia [None]
  - Blister [None]
  - Swollen tongue [None]
  - Mouth swelling [None]
  - Bone pain [None]
  - Swelling face [None]
  - Toothache [None]

NARRATIVE: CASE EVENT DATE: 20160609
